FAERS Safety Report 13814412 (Version 1)
Quarter: 2017Q3

REPORT INFORMATION
  Report Type: Spontaneous
  Country: US (occurrence: US)
  Receive Date: 20170728
  Receipt Date: 20170728
  Transmission Date: 20171127
  Serious: Yes (Other)
  Sender: FDA-Public Use
  Company Number: None

PATIENT
  Age: 30 Year
  Sex: Female

DRUGS (1)
  1. LEXAPRO [Suspect]
     Active Substance: ESCITALOPRAM OXALATE
     Indication: GENERALISED ANXIETY DISORDER
     Route: 048
     Dates: start: 20170723, end: 20170727

REACTIONS (3)
  - Adverse drug reaction [None]
  - Product substitution issue [None]
  - Product physical issue [None]

NARRATIVE: CASE EVENT DATE: 20170727
